FAERS Safety Report 6612573-9 (Version None)
Quarter: 2010Q1

REPORT INFORMATION
  Report Type: 
  Country: None (occurrence: None)
  Receive Date: 20100303
  Receipt Date: 20100219
  Transmission Date: 20100710
  Serious: Yes (Hospitalization)
  Sender: FDA-Public Use
  Company Number: US-WYE-H12890410

PATIENT
  Sex: Female
  Weight: 89.89 kg

DRUGS (7)
  1. PRISTIQ [Suspect]
     Indication: DEPRESSION
     Route: 048
     Dates: start: 20091117, end: 20100105
  2. ACCUPRIL [Concomitant]
     Indication: HYPERTENSION
  3. KLOR-CON [Concomitant]
  4. CYCLOBENZAPRINE [Concomitant]
     Indication: MUSCLE SPASMS
     Dosage: 2 MG, FREQUENCY UNKNOWN
  5. HYDROCHLOROTHIAZIDE [Concomitant]
     Dosage: UNKNOWN
  6. METFORMIN HYDROCHLORIDE [Concomitant]
  7. LIPITOR [Concomitant]
     Indication: BLOOD CHOLESTEROL INCREASED

REACTIONS (7)
  - CELLULITIS [None]
  - HYPERSENSITIVITY [None]
  - OEDEMA PERIPHERAL [None]
  - PAIN OF SKIN [None]
  - RASH ERYTHEMATOUS [None]
  - RASH MACULO-PAPULAR [None]
  - RASH PRURITIC [None]
